FAERS Safety Report 24289106 (Version 1)
Quarter: 2024Q3

REPORT INFORMATION
  Report Type: Spontaneous
  Country: DE (occurrence: DE)
  Receive Date: 20240906
  Receipt Date: 20240906
  Transmission Date: 20241017
  Serious: Yes (Other)
  Sender: TEVA
  Company Number: None

PATIENT
  Age: 43 Year
  Sex: Female

DRUGS (13)
  1. COPAXONE [Suspect]
     Active Substance: GLATIRAMER ACETATE
     Indication: Multiple sclerosis
     Dosage: 40 MG 3 TIMES A WEEK
     Route: 058
     Dates: start: 201705, end: 20171122
  2. COPAXONE [Suspect]
     Active Substance: GLATIRAMER ACETATE
     Indication: Multiple sclerosis
     Dosage: INITIALLY 20 MG PER DAY
     Route: 058
     Dates: start: 20170420
  3. VALDOXAN [Concomitant]
     Active Substance: AGOMELATINE
     Indication: Product used for unknown indication
     Dosage: 0-0-1-0
     Route: 065
  4. TRAMADOL [Concomitant]
     Active Substance: TRAMADOL\TRAMADOL HYDROCHLORIDE
     Indication: Product used for unknown indication
     Dosage: 0-0-1-0, SUSTAINED RELEASE TABLETS
     Route: 065
  5. OMEPRAZOLE [Concomitant]
     Active Substance: OMEPRAZOLE
     Indication: Product used for unknown indication
     Dosage: 1-0-0-0
     Route: 065
  6. ENALAPRIL [Concomitant]
     Active Substance: ENALAPRIL
     Indication: Product used for unknown indication
     Dosage: 1-0-1-0
     Route: 065
  7. TRAMAZOLINE HYDROCHLORIDE [Concomitant]
     Active Substance: TRAMAZOLINE HYDROCHLORIDE
     Indication: Product used for unknown indication
     Dosage: TIME INTERVAL: AS NECESSARY
     Route: 065
  8. LEVOTHYROXINE SODIUM\POTASSIUM IODIDE [Concomitant]
     Active Substance: LEVOTHYROXINE SODIUM\POTASSIUM IODIDE
     Indication: Product used for unknown indication
     Dosage: 150/75UG 1-0-0-0
     Route: 065
  9. BISOPROLOL [Concomitant]
     Active Substance: BISOPROLOL\BISOPROLOL FUMARATE
     Indication: Sinus tachycardia
     Dosage: 1-0-0-0
     Route: 065
  10. DIMETHINDENE [Concomitant]
     Active Substance: DIMETHINDENE
     Indication: Product used for unknown indication
     Dosage: 0-0-1-0, TABLETS
     Route: 065
  11. FURADANTIN [Concomitant]
     Active Substance: NITROFURANTOIN
     Indication: Product used for unknown indication
     Route: 065
  12. BEROTEC [Concomitant]
     Active Substance: FENOTEROL HYDROBROMIDE
     Indication: Product used for unknown indication
     Dosage: TIME INTERVAL: AS NECESSARY
     Route: 065
  13. XELLIA [Concomitant]
     Indication: Product used for unknown indication
     Dosage: 0-0-1-0
     Route: 065

REACTIONS (24)
  - Near death experience [Recovered/Resolved with Sequelae]
  - Injection site erythema [Unknown]
  - Hot flush [Unknown]
  - Anxiety [Not Recovered/Not Resolved]
  - Flushing [Unknown]
  - Pain [Unknown]
  - Fatigue [Unknown]
  - Vomiting [Recovered/Resolved]
  - Asthenia [Unknown]
  - Diarrhoea [Recovered/Resolved]
  - Palpitations [Not Recovered/Not Resolved]
  - Psychological trauma [Not Recovered/Not Resolved]
  - Soft tissue disorder [Unknown]
  - Facial pain [Unknown]
  - Injection site pain [Recovered/Resolved with Sequelae]
  - Sense of oppression [Unknown]
  - Pruritus [Unknown]
  - Fine motor skill dysfunction [Unknown]
  - Injection site scar [Recovered/Resolved with Sequelae]
  - Dizziness [Unknown]
  - Nausea [Unknown]
  - Injection site warmth [Unknown]
  - Loss of consciousness [Recovered/Resolved]
  - Dyspnoea [Unknown]

NARRATIVE: CASE EVENT DATE: 20171122
